FAERS Safety Report 23369153 (Version 1)
Quarter: 2024Q1

REPORT INFORMATION
  Report Type: Spontaneous
  Country: US (occurrence: US)
  Receive Date: 20240105
  Receipt Date: 20240105
  Transmission Date: 20240410
  Serious: Yes (Death, Disabling, Other)
  Sender: FDA-Public Use
  Company Number: US-OPELLA-2024OHG000299

PATIENT
  Age: 74 Year
  Sex: Male

DRUGS (1)
  1. TALC [Suspect]
     Active Substance: TALC
     Route: 065

REACTIONS (5)
  - Exposure to chemical pollution [Fatal]
  - Pleural mesothelioma malignant [Fatal]
  - Disability [Fatal]
  - Pain [Unknown]
  - Anxiety [Unknown]

NARRATIVE: CASE EVENT DATE: 19700101
